FAERS Safety Report 10935140 (Version 1)
Quarter: 2015Q1

REPORT INFORMATION
  Report Type: Spontaneous
  Country: JP (occurrence: JP)
  Receive Date: 20150320
  Receipt Date: 20150320
  Transmission Date: 20150721
  Serious: Yes (Disabling, Other)
  Sender: FDA-Public Use
  Company Number: JP-PFIZER INC-2015101221

PATIENT
  Age: 27 Year
  Sex: Male
  Weight: 58 kg

DRUGS (1)
  1. BENEFIX [Suspect]
     Active Substance: COAGULATION FACTOR IX RECOMBINANT HUMAN\ISOPROPYL ALCOHOL
     Indication: HAEMOPHILIA
     Dosage: UNK, (ADMINISTERED 8 TIMES PER MONTH)
     Route: 042
     Dates: start: 20100816

REACTIONS (1)
  - Gastrointestinal haemorrhage [Unknown]
